FAERS Safety Report 18387419 (Version 1)
Quarter: 2020Q4

REPORT INFORMATION
  Report Type: Spontaneous
  Country: US (occurrence: US)
  Receive Date: 20201014
  Receipt Date: 20201014
  Transmission Date: 20210114
  Serious: Yes (Disabling)
  Sender: FDA-Public Use
  Company Number: None

PATIENT
  Age: 58 Year
  Sex: Female
  Weight: 68.04 kg

DRUGS (6)
  1. LEVALBUTEROL. [Concomitant]
     Active Substance: LEVALBUTEROL
  2. EXPAREL [Suspect]
     Active Substance: BUPIVACAINE
     Indication: POSTOPERATIVE ANALGESIA
     Dates: start: 20200405, end: 20200405
  3. VITAMIN C [Concomitant]
     Active Substance: ASCORBIC ACID
  4. DONJAY-ULTRASLING III [Concomitant]
  5. PERCOCET [Concomitant]
     Active Substance: ACETAMINOPHEN\OXYCODONE HYDROCHLORIDE
  6. MATURE MULTI VITAMINS [Concomitant]

REACTIONS (5)
  - Median nerve injury [None]
  - Paralysis [None]
  - Dizziness [None]
  - Pain in extremity [None]
  - Neuritis [None]
